FAERS Safety Report 17009339 (Version 4)
Quarter: 2020Q2

REPORT INFORMATION
  Report Type: Report from Study
  Country: FR (occurrence: FR)
  Receive Date: 20191108
  Receipt Date: 20200507
  Transmission Date: 20200713
  Serious: Yes (Other)
  Sender: FDA-Public Use
  Company Number: FR-EISAI MEDICAL RESEARCH-EC-2019-064935

PATIENT
  Age: 67 Year
  Sex: Male

DRUGS (7)
  1. SMECTA [Concomitant]
     Active Substance: MONTMORILLONITE
  2. UNALPHA [Concomitant]
  3. LEVOTHYROX [Concomitant]
     Active Substance: LEVOTHYROXINE
  4. CALCIDIA [Concomitant]
     Active Substance: CALCIUM CARBONATE
  5. LENVATINIB [Suspect]
     Active Substance: LENVATINIB
     Route: 048
     Dates: start: 20190522
  6. LENVATINIB [Suspect]
     Active Substance: LENVATINIB
     Indication: THYROID CANCER
     Route: 048
     Dates: start: 20190121, end: 20190210
  7. LENVATINIB [Suspect]
     Active Substance: LENVATINIB
     Route: 048
     Dates: start: 2019, end: 20190423

REACTIONS (2)
  - Oedema peripheral [Recovered/Resolved]
  - Myalgia [Recovered/Resolved]

NARRATIVE: CASE EVENT DATE: 20190210
